FAERS Safety Report 5943776-4 (Version None)
Quarter: 2008Q4

REPORT INFORMATION
  Report Type: 
  Country: None (occurrence: None)
  Receive Date: 20081106
  Receipt Date: 20081006
  Transmission Date: 20090506
  Serious: No
  Sender: FDA-Public Use
  Company Number: US-BAYER-200835164NA

PATIENT
  Age: 65 Year
  Sex: Female
  Weight: 75 kg

DRUGS (1)
  1. MAGNEVIST [Suspect]
     Indication: BREAST CANCER
     Dosage: TOTAL DAILY DOSE: 20 ML  UNIT DOSE: 100 ML
     Route: 042
     Dates: start: 20081002, end: 20081002

REACTIONS (1)
  - URTICARIA [None]
